FAERS Safety Report 5727281-6 (Version None)
Quarter: 2008Q2

REPORT INFORMATION
  Report Type: 
  Country: None (occurrence: None)
  Receive Date: 20080505
  Receipt Date: 20080422
  Transmission Date: 20081010
  Serious: Yes (Hospitalization, Other)
  Sender: FDA-Public Use
  Company Number: FR-AMGEN-UK275815

PATIENT
  Sex: Male

DRUGS (3)
  1. MIMPARA [Suspect]
     Indication: DRUG USE FOR UNKNOWN INDICATION
     Route: 048
     Dates: start: 20060701
  2. OMEPRAZOLE [Concomitant]
     Route: 048
     Dates: start: 20060701
  3. ASPEGIC 1000 [Concomitant]
     Route: 048
     Dates: start: 20071001

REACTIONS (5)
  - ARTERIOSCLEROSIS OBLITERANS [None]
  - DERMATITIS EXFOLIATIVE [None]
  - EOSINOPHILIA [None]
  - LYMPHOPENIA [None]
  - TOXIC SKIN ERUPTION [None]
